FAERS Safety Report 8593645 (Version 3)
Quarter: 2013Q3

REPORT INFORMATION
  Report Type: Spontaneous
  Country: US (occurrence: US)
  Receive Date: 20120604
  Receipt Date: 20130820
  Transmission Date: 20140515
  Serious: Yes (Other)
  Sender: FDA-Public Use
  Company Number: US-PFIZER INC-2012129328

PATIENT
  Age: 62 Year
  Sex: Female

DRUGS (5)
  1. FELDENE [Suspect]
     Indication: PSORIATIC ARTHROPATHY
     Dosage: 20 MG, DAILY
     Route: 048
  2. DIGOXIN [Concomitant]
     Dosage: UNK
  3. METOPROLOL [Concomitant]
     Dosage: UNK
  4. WARFARIN [Concomitant]
     Dosage: UNK
  5. RAMIPRIL [Concomitant]
     Dosage: UNK

REACTIONS (4)
  - Atrial fibrillation [Unknown]
  - Cardiac failure [Unknown]
  - Gastrooesophageal reflux disease [Unknown]
  - Pain [Not Recovered/Not Resolved]
